FAERS Safety Report 4985172-2 (Version None)
Quarter: 2006Q2

REPORT INFORMATION
  Report Type: 
  Country: None (occurrence: None)
  Receive Date: 20060427
  Receipt Date: 20060307
  Transmission Date: 20061013
  Serious: Yes (Hospitalization, Disabling, Other)
  Sender: FDA-Public Use
  Company Number: US-MERCK-0603USA01365

PATIENT
  Age: 73 Year
  Sex: Male
  Weight: 100 kg

DRUGS (1)
  1. VIOXX [Suspect]
     Indication: ARTHRITIS
     Route: 048
     Dates: start: 20010621, end: 20041001

REACTIONS (16)
  - ANXIETY [None]
  - BONE NEOPLASM [None]
  - CEREBROVASCULAR ACCIDENT [None]
  - CHEST PAIN [None]
  - DEPRESSION [None]
  - ISCHAEMIC STROKE [None]
  - LOWER EXTREMITY MASS [None]
  - MYOCARDIAL INFARCTION [None]
  - ORGAN FAILURE [None]
  - PAIN [None]
  - PETECHIAE [None]
  - POLYTRAUMATISM [None]
  - PULMONARY EMBOLISM [None]
  - SPINAL COLUMN STENOSIS [None]
  - THROMBOSIS [None]
  - VERTEBRAL ARTERY STENOSIS [None]
